FAERS Safety Report 16409168 (Version 1)
Quarter: 2019Q2

REPORT INFORMATION
  Report Type: Spontaneous
  Country: US (occurrence: US)
  Receive Date: 20190610
  Receipt Date: 20190610
  Transmission Date: 20190711
  Serious: No
  Sender: FDA-Public Use
  Company Number: US-VERTEX PHARMACEUTICALS-2019-005212

PATIENT
  Age: 2 Year
  Sex: Female

DRUGS (2)
  1. ORKAMBI [Suspect]
     Active Substance: IVACAFTOR\LUMACAFTOR
     Indication: CYSTIC FIBROSIS
     Dosage: 100/125 MG GRANULES, BID
     Route: 048
     Dates: start: 201902
  2. PULMOZYME [Concomitant]
     Active Substance: DORNASE ALFA
     Dosage: 1 AMPULE (2.5 ML), QD
     Route: 055

REACTIONS (2)
  - Decreased appetite [Recovering/Resolving]
  - Malaise [Recovering/Resolving]

NARRATIVE: CASE EVENT DATE: 20190517
